FAERS Safety Report 8924480 (Version 1)
Quarter: 2012Q4

REPORT INFORMATION
  Report Type: 
  Country: IT (occurrence: IT)
  Receive Date: 20121126
  Receipt Date: 20121126
  Transmission Date: 20130627
  Serious: Yes (Other)
  Sender: FDA-Public Use
  Company Number: IT-TEVA-371460ISR

PATIENT
  Age: 64 Year
  Sex: Male

DRUGS (2)
  1. CISPLATINO [Suspect]
     Indication: LUNG ADENOCARCINOMA
     Dosage: 124 Milligram Daily; 0.5 mg/ml concentrate for solution for infusion
     Route: 042
     Dates: start: 20121016, end: 20121016
  2. ALIMPTA [Concomitant]
     Indication: LUNG ADENOCARCINOMA
     Dosage: 885 Milligram Daily; powder for concentrate for solution for infusion
     Route: 042
     Dates: start: 20121016, end: 20121016

REACTIONS (3)
  - Dyspnoea [Recovered/Resolved]
  - Cyanosis [Recovered/Resolved]
  - Bronchostenosis [Recovered/Resolved]
